FAERS Safety Report 10056289 (Version 2)
Quarter: 2014Q2

REPORT INFORMATION
  Report Type: Spontaneous
  Country: US (occurrence: US)
  Receive Date: 20140403
  Receipt Date: 20140415
  Transmission Date: 20141212
  Serious: No
  Sender: FDA-Public Use
  Company Number: US-TEVA-472874USA

PATIENT
  Age: 91 Year
  Sex: Female
  Weight: 51.76 kg

DRUGS (7)
  1. PROAIR HFA [Suspect]
     Indication: ASTHMA
     Dosage: 2 PUFFS
     Route: 055
  2. QVAR [Concomitant]
  3. L-THYROXINE [Concomitant]
     Indication: HYPOTHYROIDISM
  4. URSODIOL [Concomitant]
     Indication: LIVER DISORDER
  5. CALCIUM [Concomitant]
  6. VITAMIN D3 [Concomitant]
  7. MULTIVITAMIN [Concomitant]

REACTIONS (3)
  - Rash pruritic [Not Recovered/Not Resolved]
  - Erythema [Unknown]
  - Rash generalised [Unknown]
